FAERS Safety Report 15627862 (Version 1)
Quarter: 2020Q3

REPORT INFORMATION
  Report Type: Report from Study
  Country: US (occurrence: US)
  Receive Date: 20181116
  Receipt Date: 20181116
  Transmission Date: 20201105
  Serious: Yes (Hospitalization)
  Sender: FDA-Public Use
  Company Number: US-ASTRAZENECA-2018SF30618

PATIENT
  Age: 63 Year
  Sex: Female
  Weight: 84.5 kg

DRUGS (24)
  1. DOCUSATE SODIUM. [Concomitant]
     Active Substance: DOCUSATE SODIUM
  2. FAMOTIDINE. [Concomitant]
     Active Substance: FAMOTIDINE
  3. MAGNESIUM OXIDE. [Concomitant]
     Active Substance: MAGNESIUM OXIDE
  4. OXYCODONE [Concomitant]
     Active Substance: OXYCODONE
  5. CETIRIZINE [Concomitant]
     Active Substance: CETIRIZINE HYDROCHLORIDE
  6. ONDANSETRON [Concomitant]
     Active Substance: ONDANSETRON
  7. POLYETHYLENE GLYCOL [Concomitant]
     Active Substance: POLYETHYLENE GLYCOLS
  8. ALLOPURINOL. [Concomitant]
     Active Substance: ALLOPURINOL
  9. CHOLECALCIFEROL [Concomitant]
     Active Substance: CHOLECALCIFEROL
  10. INDOMETHACIN. [Concomitant]
     Active Substance: INDOMETHACIN
  11. SPIRONOLACTONE. [Concomitant]
     Active Substance: SPIRONOLACTONE
  12. LIDOCAINE. [Concomitant]
     Active Substance: LIDOCAINE
  13. MUPIROCIN. [Concomitant]
     Active Substance: MUPIROCIN
  14. UREA. [Concomitant]
     Active Substance: UREA
  15. OMEPRAZOLE. [Concomitant]
     Active Substance: OMEPRAZOLE
  16. NYSTATIN. [Concomitant]
     Active Substance: NYSTATIN
  17. MEDI4736 [Suspect]
     Active Substance: DURVALUMAB
     Indication: CHOLANGIOCARCINOMA
     Route: 042
     Dates: start: 20180918, end: 20181015
  18. TREMELIMUMAB. [Suspect]
     Active Substance: TREMELIMUMAB
     Indication: CHOLANGIOCARCINOMA
     Route: 042
     Dates: start: 20180918, end: 20181015
  19. ALUMINUM?MAGNESIUM [Concomitant]
  20. LORAZEPAM. [Concomitant]
     Active Substance: LORAZEPAM
  21. SENNA [Concomitant]
     Active Substance: SENNA LEAF\SENNOSIDES\SENNOSIDES A AND B
  22. SIMETHICONE (DIMETHICONE) [Concomitant]
     Active Substance: DIMETHICONE
  23. CAMPHOR?MENTHOL [Concomitant]
  24. METRONIDAZOLE. [Concomitant]
     Active Substance: METRONIDAZOLE

REACTIONS (9)
  - Decreased appetite [Unknown]
  - Blood bilirubin increased [Unknown]
  - Alanine aminotransferase increased [Unknown]
  - Fatigue [Unknown]
  - Nausea [Unknown]
  - Lymphocyte count decreased [Unknown]
  - Abdominal pain [Unknown]
  - Aspartate aminotransferase increased [Unknown]
  - Vomiting [Unknown]

NARRATIVE: CASE EVENT DATE: 20181003
